FAERS Safety Report 23819656 (Version 1)
Quarter: 2024Q2

REPORT INFORMATION
  Report Type: Spontaneous
  Country: CA (occurrence: CA)
  Receive Date: 20240506
  Receipt Date: 20240506
  Transmission Date: 20240715
  Serious: Yes (Hospitalization)
  Sender: FDA-Public Use
  Company Number: CA-MACLEODS PHARMA-MAC2024047100

PATIENT
  Age: 47 Year
  Sex: Female

DRUGS (6)
  1. VENLAFAXINE [Suspect]
     Active Substance: VENLAFAXINE HYDROCHLORIDE
     Indication: Depression
     Route: 065
  2. Human Biosynthetic Insulin [Concomitant]
     Indication: Product used for unknown indication
     Dosage: TOTAL (TOTAL 13 U DAILY)
     Route: 065
  3. LEVOTHYROXINE [Concomitant]
     Active Substance: LEVOTHYROXINE\LEVOTHYROXINE SODIUM
     Indication: Product used for unknown indication
     Route: 065
  4. TERAZOSIN [Concomitant]
     Active Substance: TERAZOSIN HYDROCHLORIDE
     Indication: Product used for unknown indication
     Route: 048
  5. FELODIPINE [Concomitant]
     Active Substance: FELODIPINE
     Indication: Product used for unknown indication
     Route: 048
  6. BETHANECHOL CHLORIDE [Concomitant]
     Active Substance: BETHANECHOL CHLORIDE
     Indication: Product used for unknown indication
     Route: 065

REACTIONS (7)
  - Coagulopathy [Recovering/Resolving]
  - Epistaxis [Recovering/Resolving]
  - Hypertension [Recovering/Resolving]
  - Increased tendency to bruise [Recovering/Resolving]
  - Activated partial thromboplastin time prolonged [Recovering/Resolving]
  - Coagulation factor VIII level increased [Recovering/Resolving]
  - Ecchymosis [Recovering/Resolving]
